FAERS Safety Report 9629932 (Version 3)
Quarter: 2013Q4

REPORT INFORMATION
  Report Type: Spontaneous
  Country: US (occurrence: US)
  Receive Date: 20131017
  Receipt Date: 20131108
  Transmission Date: 20140711
  Serious: Yes (Hospitalization, Other)
  Sender: FDA-Public Use
  Company Number: US-PFIZER INC-2013291965

PATIENT
  Age: 9 Year
  Sex: Male

DRUGS (5)
  1. PHENYTOIN [Suspect]
     Indication: CONVULSION
     Dosage: 125 MG/DAY (4.6 MG/KG)
  2. PHENYTOIN [Suspect]
     Dosage: 200 MG/DAY
  3. PRIMIDONE [Concomitant]
     Indication: CONVULSION
     Dosage: 500 MG/DAY
  4. PRIMIDONE [Concomitant]
     Dosage: 250 MG/DAY
  5. ETHOSUXIMIDE [Concomitant]
     Indication: CONVULSION
     Dosage: 500 MG/DAY

REACTIONS (7)
  - Toxicity to various agents [Unknown]
  - Lethargy [Recovering/Resolving]
  - Speech disorder [Recovering/Resolving]
  - Hypotonia [Unknown]
  - Ataxia [Recovered/Resolved]
  - Anticonvulsant drug level increased [Unknown]
  - Drug ineffective [Recovered/Resolved]
